FAERS Safety Report 16107720 (Version 1)
Quarter: 2019Q1

REPORT INFORMATION
  Report Type: Spontaneous
  Country: US (occurrence: US)
  Receive Date: 20190322
  Receipt Date: 20190322
  Transmission Date: 20190418
  Serious: Yes (Other)
  Sender: FDA-Public Use
  Company Number: US-SA-2019SA074742

PATIENT
  Age: 66 Year
  Sex: Female

DRUGS (1)
  1. LANTUS SOLOSTAR [Suspect]
     Active Substance: INSULIN GLARGINE
     Indication: DIABETES MELLITUS
     Dosage: 60 U, BID
     Route: 065

REACTIONS (6)
  - Inappropriate schedule of product administration [Unknown]
  - Facial paralysis [Recovering/Resolving]
  - Product storage error [Unknown]
  - Upper respiratory tract infection [Recovering/Resolving]
  - Product use complaint [Unknown]
  - Diabetic neuropathy [Recovering/Resolving]

NARRATIVE: CASE EVENT DATE: 20180102
